FAERS Safety Report 23172459 (Version 1)
Quarter: 2023Q4

REPORT INFORMATION
  Report Type: Spontaneous
  Country: CN (occurrence: None)
  Receive Date: 20231110
  Receipt Date: 20231110
  Transmission Date: 20240110
  Serious: Yes (Other)
  Sender: FDA-Public Use
  Company Number: 2023A252587

PATIENT
  Age: 28532 Day
  Sex: Female
  Weight: 48 kg

DRUGS (1)
  1. TAGRISSO [Suspect]
     Active Substance: OSIMERTINIB
     Indication: Chemotherapy
     Route: 048
     Dates: start: 20190601, end: 20231101

REACTIONS (3)
  - Deep vein thrombosis [Recovering/Resolving]
  - Malignant neoplasm progression [Unknown]
  - Epilepsy [Unknown]

NARRATIVE: CASE EVENT DATE: 20231022
